FAERS Safety Report 6577790-5 (Version None)
Quarter: 2010Q1

REPORT INFORMATION
  Report Type: 
  Country: None (occurrence: None)
  Receive Date: 20100211
  Receipt Date: 20100205
  Transmission Date: 20100710
  Serious: Yes (Other)
  Sender: FDA-Public Use
  Company Number: BE-BAYER-201015159GPV

PATIENT

DRUGS (2)
  1. AVELOX [Suspect]
     Indication: DRUG USE FOR UNKNOWN INDICATION
     Route: 065
  2. DRUG FOR QTC-PROLONGATION NOS [Concomitant]
     Indication: ELECTROCARDIOGRAM QT PROLONGED

REACTIONS (1)
  - MYOCARDIAL INFARCTION [None]
